FAERS Safety Report 18278583 (Version 1)
Quarter: 2020Q3

REPORT INFORMATION
  Report Type: Spontaneous
  Country: US (occurrence: US)
  Receive Date: 20200917
  Receipt Date: 20200917
  Transmission Date: 20201103
  Serious: Yes (Hospitalization)
  Sender: FDA-Public Use
  Company Number: None

PATIENT
  Age: 73 Year
  Sex: Female

DRUGS (21)
  1. PREDNISONE. [Concomitant]
     Active Substance: PREDNISONE
  2. AMOX/K CLAV [Concomitant]
     Active Substance: AMOXICILLIN\CLAVULANATE POTASSIUM
  3. LACTULOSE. [Concomitant]
     Active Substance: LACTULOSE
  4. CIPRO [Concomitant]
     Active Substance: CIPROFLOXACIN HYDROCHLORIDE
  5. POT CL MICRO [Concomitant]
  6. DUOBRII [Concomitant]
     Active Substance: HALOBETASOL PROPIONATE\TAZAROTENE
  7. HYOSCYAMINE. [Concomitant]
     Active Substance: HYOSCYAMINE
  8. FLUCONAZOLE. [Concomitant]
     Active Substance: FLUCONAZOLE
  9. TRAZODONE [Concomitant]
     Active Substance: TRAZODONE HYDROCHLORIDE
  10. LIDOCAINE. [Concomitant]
     Active Substance: LIDOCAINE
  11. REPATHA [Suspect]
     Active Substance: EVOLOCUMAB
     Indication: PRODUCT USED FOR UNKNOWN INDICATION
     Dosage: ?          OTHER FREQUENCY:EVERY 14 DAYS;?
     Route: 058
     Dates: start: 20190404
  12. METHIMAZOLE. [Concomitant]
     Active Substance: METHIMAZOLE
  13. TACROLIMUS. [Concomitant]
     Active Substance: TACROLIMUS
  14. PREGABALIN. [Concomitant]
     Active Substance: PREGABALIN
  15. DULOXETINE. [Concomitant]
     Active Substance: DULOXETINE
  16. INSULIN [Concomitant]
     Active Substance: INSULIN NOS
  17. COSENTYX [Suspect]
     Active Substance: SECUKINUMAB
     Indication: PSORIASIS
     Dosage: ?          OTHER FREQUENCY:EVERY 4 WEEKS;?
     Route: 058
     Dates: start: 20200714
  18. METHOTREXATE. [Concomitant]
     Active Substance: METHOTREXATE
  19. OXYCODONE [Concomitant]
     Active Substance: OXYCODONE
  20. HYDROXYZ HCL [Concomitant]
     Active Substance: HYDROXYZINE HYDROCHLORIDE
  21. POT CHLORIDE [Concomitant]
     Active Substance: POTASSIUM CHLORIDE

REACTIONS (2)
  - Urinary tract infection [None]
  - Ankle fracture [None]

NARRATIVE: CASE EVENT DATE: 20200908
